FAERS Safety Report 4484940-3 (Version None)
Quarter: 2004Q3

REPORT INFORMATION
  Report Type: 
  Country: None (occurrence: None)
  Receive Date: 20040921
  Receipt Date: 20030805
  Transmission Date: 20050211
  Serious: Yes (Other)
  Sender: FDA-Public Use
  Company Number: 163-20785-03080273 (0)

PATIENT
  Age: 37 Year
  Sex: Female

DRUGS (3)
  1. THALOMID [Suspect]
     Indication: ASTROCYTOMA
     Dosage: 100 MG, DAILY, ORAL
     Route: 048
     Dates: start: 20030701
  2. TEGRETOL [Concomitant]
  3. DILANTIN [Concomitant]

REACTIONS (2)
  - CONDITION AGGRAVATED [None]
  - CONVULSION [None]
